FAERS Safety Report 7962363-X (Version None)
Quarter: 2011Q4

REPORT INFORMATION
  Report Type: 
  Country: None (occurrence: None)
  Receive Date: 20111207
  Receipt Date: 20111206
  Transmission Date: 20120403
  Serious: Yes (Hospitalization)
  Sender: FDA-Public Use
  Company Number: SE-MERCK-1110SWE00053

PATIENT
  Age: 64 Year
  Sex: Female

DRUGS (7)
  1. ZOPICLONE [Concomitant]
     Indication: INSOMNIA
     Route: 048
  2. ROTIGOTINE [Concomitant]
     Route: 065
  3. SINEMET [Suspect]
     Indication: PARKINSON'S DISEASE
     Route: 048
     Dates: start: 20100401
  4. MIANSERIN HYDROCHLORIDE [Concomitant]
     Route: 048
  5. ROPINIROLE HYDROCHLORIDE [Concomitant]
     Route: 065
  6. BENSERAZIDE HYDROCHLORIDE AND LEVODOPA [Concomitant]
     Route: 065
  7. VENLAFAXINE HYDROCHLORIDE [Concomitant]
     Route: 065

REACTIONS (1)
  - HEAD DISCOMFORT [None]
